FAERS Safety Report 10382210 (Version 3)
Quarter: 2014Q4

REPORT INFORMATION
  Report Type: Report from Study
  Country: US (occurrence: US)
  Receive Date: 20140813
  Receipt Date: 20141124
  Transmission Date: 20150528
  Serious: Yes (Other)
  Sender: FDA-Public Use
  Company Number: US-BAXTER-2014BAX047160

PATIENT
  Sex: Female

DRUGS (2)
  1. GAMMAGARD LIQUID [Suspect]
     Active Substance: HUMAN IMMUNOGLOBULIN G
     Indication: PRODUCT USED FOR UNKNOWN INDICATION
     Dosage: 5 GM AND 3 GM FOR A TOTAL OF 8 GM
     Route: 058
  2. GAMMAGARD LIQUID [Suspect]
     Active Substance: HUMAN IMMUNOGLOBULIN G
     Dosage: TOTAL OF 10 GM WEEKLY
     Route: 058

REACTIONS (11)
  - Staphylococcal infection [Not Recovered/Not Resolved]
  - Laryngitis [Unknown]
  - Infusion site reaction [Unknown]
  - Sinus disorder [Not Recovered/Not Resolved]
  - Bone pain [Unknown]
  - Vomiting [Unknown]
  - Spasmodic dysphonia [Not Recovered/Not Resolved]
  - Hearing impaired [Not Recovered/Not Resolved]
  - Abdominal distension [Unknown]
  - Infusion site erythema [Unknown]
  - Nasal discharge discolouration [Not Recovered/Not Resolved]

NARRATIVE: CASE EVENT DATE: 2014
